FAERS Safety Report 19311973 (Version 2)
Quarter: 2021Q2

REPORT INFORMATION
  Report Type: Other
  Country: AU (occurrence: AU)
  Receive Date: 20210527
  Receipt Date: 20210527
  Transmission Date: 20210717
  Serious: No
  Sender: FDA-Public Use
  Company Number: AU-ROCHE-2832778

PATIENT
  Sex: Female

DRUGS (1)
  1. OCREVUS [Suspect]
     Active Substance: OCRELIZUMAB
     Indication: RELAPSING-REMITTING MULTIPLE SCLEROSIS
     Dosage: 1A INFUSION ON 01/APR/2021?1B INFUSION ON 15/APR/2021
     Route: 041
     Dates: start: 20210401

REACTIONS (1)
  - Herpes zoster [Recovering/Resolving]
